FAERS Safety Report 24097169 (Version 1)
Quarter: 2024Q3

REPORT INFORMATION
  Report Type: Report from Study
  Country: HN (occurrence: HN)
  Receive Date: 20240716
  Receipt Date: 20240716
  Transmission Date: 20241017
  Serious: Yes (Other)
  Sender: REGENERON
  Company Number: HN-BAYER-2024A100084

PATIENT

DRUGS (3)
  1. EYLEA [Suspect]
     Active Substance: AFLIBERCEPT
     Indication: Diabetic retinal oedema
     Dosage: 2 MG INTRAVITREAL MONTHLY FOR 5 MONTHS, THEN EVERY 2 MONTHS,ONCE, BOTH EYES, SOL. FOR INJ., 40 MG/ML
     Dates: start: 20230427, end: 20230427
  2. EYLEA [Suspect]
     Active Substance: AFLIBERCEPT
     Dosage: 2 MG INTRAVITREAL MONTHLY FOR 5 MONTHS, THEN EVERY 2 MONTHS,ONCE, BOTH EYES, SOL. FOR INJ., 40 MG/ML
     Dates: start: 20230527, end: 20230527
  3. EYLEA [Suspect]
     Active Substance: AFLIBERCEPT
     Dosage: 2 MG INTRAVITREAL MONTHLY FOR 5 MONTHS, THEN EVERY 2 MONTHS,ONCE, BOTH EYES, SOL. FOR INJ., 40 MG/ML
     Dates: start: 20230627, end: 20230627

REACTIONS (2)
  - Eye infection [Not Recovered/Not Resolved]
  - Inappropriate schedule of product administration [Unknown]

NARRATIVE: CASE EVENT DATE: 20240701
